FAERS Safety Report 4731464-1 (Version None)
Quarter: 2005Q3

REPORT INFORMATION
  Report Type: 
  Country: None (occurrence: None)
  Receive Date: 20050719
  Receipt Date: 20040608
  Transmission Date: 20060218
  Serious: Yes (Hospitalization)
  Sender: FDA-Public Use
  Company Number: 199580

PATIENT
  Age: 52 Year
  Sex: Male

DRUGS (18)
  1. AVONEX [Suspect]
     Indication: MULTIPLE SCLEROSIS
     Dosage: 30 UG;QW;IM
     Route: 030
     Dates: start: 20010517
  2. ULTRACET [Concomitant]
  3. NOVANTRONE [Concomitant]
  4. PHENOBARBITAL [Concomitant]
  5. REMERON [Concomitant]
  6. DESIPRAMINE HCL [Concomitant]
  7. ZONEGRAN [Concomitant]
  8. VIOXX [Concomitant]
  9. ACIPHEX [Concomitant]
  10. KEPPRA [Concomitant]
  11. VITAMIN D [Concomitant]
  12. COENZYME Q10 [Concomitant]
  13. EXELON [Concomitant]
  14. FOLIC ACID [Concomitant]
  15. KLONOPIN [Concomitant]
  16. PAXIL [Concomitant]
  17. TRILEPTAL [Concomitant]
  18. BUSPAR [Concomitant]

REACTIONS (3)
  - CONFUSIONAL STATE [None]
  - FEELING ABNORMAL [None]
  - GRAND MAL CONVULSION [None]
